FAERS Safety Report 10240037 (Version 2)
Quarter: 2014Q2

REPORT INFORMATION
  Report Type: Spontaneous
  Country: US (occurrence: US)
  Receive Date: 20140617
  Receipt Date: 20140617
  Transmission Date: 20141212
  Serious: Yes (Other)
  Sender: FDA-Public Use
  Company Number: 2014SP001462

PATIENT
  Age: 52 Year
  Sex: Female

DRUGS (9)
  1. DOXYCYCLINE [Suspect]
     Indication: LOCALISED INFECTION
  2. DOXYCYCLINE [Suspect]
     Indication: SKIN ULCER
  3. DOXYCYCLINE [Suspect]
     Indication: RASH PUSTULAR
  4. DOXYCYCLINE [Suspect]
     Indication: LOCALISED INFECTION
  5. DOXYCYCLINE [Suspect]
     Indication: SKIN ULCER
  6. DOXYCYCLINE [Suspect]
     Indication: RASH PUSTULAR
  7. CLINDAMYCIN [Suspect]
     Indication: LOCALISED INFECTION
  8. CLINDAMYCIN [Suspect]
     Indication: SKIN ULCER
  9. CLINDAMYCIN [Suspect]
     Indication: RASH PUSTULAR

REACTIONS (1)
  - Drug ineffective [Unknown]
